FAERS Safety Report 7825781-6 (Version None)
Quarter: 2011Q4

REPORT INFORMATION
  Report Type: 
  Country: None (occurrence: None)
  Receive Date: 20111019
  Receipt Date: 20111010
  Transmission Date: 20120403
  Serious: Yes (Life-Threatening, Hospitalization, Other)
  Sender: FDA-Public Use
  Company Number: CA-JNJFOC-20110711892

PATIENT
  Weight: 100 kg

DRUGS (12)
  1. XARELTO [Suspect]
     Route: 048
     Dates: start: 20110206, end: 20110206
  2. AMLODIPINE [Concomitant]
  3. XARELTO [Suspect]
     Route: 048
     Dates: start: 20110206, end: 20110206
  4. NORVASC [Concomitant]
     Route: 048
  5. ASPIRIN [Suspect]
     Indication: CEREBROVASCULAR ACCIDENT PROPHYLAXIS
     Route: 048
     Dates: start: 20110201, end: 20110206
  6. SENOKOT [Concomitant]
  7. XARELTO [Suspect]
     Indication: KNEE ARTHROPLASTY
     Route: 048
     Dates: start: 20110201, end: 20110203
  8. LIPITOR [Concomitant]
     Route: 048
  9. ATACAND [Concomitant]
  10. CANDESARTAN CILEXETIL [Concomitant]
     Route: 048
  11. XARELTO [Suspect]
     Indication: THROMBOSIS PROPHYLAXIS
     Route: 048
     Dates: start: 20110201, end: 20110203
  12. CLOPIDOGREL [Suspect]
     Indication: CEREBROVASCULAR ACCIDENT PROPHYLAXIS
     Route: 048
     Dates: start: 20110201, end: 20110206

REACTIONS (12)
  - HELICOBACTER INFECTION [None]
  - GASTROINTESTINAL HAEMORRHAGE [None]
  - POSTOPERATIVE ILEUS [None]
  - ABDOMINAL DISTENSION [None]
  - GASTRIC ULCER [None]
  - HEART RATE INCREASED [None]
  - INCISION SITE HAEMORRHAGE [None]
  - BLOOD CREATININE INCREASED [None]
  - METABOLIC ACIDOSIS [None]
  - BLOOD PRESSURE DECREASED [None]
  - DYSPNOEA [None]
  - HAEMOGLOBIN DECREASED [None]
